FAERS Safety Report 16784044 (Version 1)
Quarter: 2019Q3

REPORT INFORMATION
  Report Type: Spontaneous
  Country: ZA (occurrence: ZA)
  Receive Date: 20190909
  Receipt Date: 20190909
  Transmission Date: 20191005
  Serious: No
  Sender: FDA-Public Use
  Company Number: ZA-LUPIN PHARMACEUTICALS INC.-2018-08040

PATIENT
  Sex: Female

DRUGS (5)
  1. FLEXOCAM [Suspect]
     Active Substance: MELOXICAM
     Indication: INFLAMMATORY PAIN
     Dosage: 15 MG, UNK
     Route: 048
  2. LISORETIC [Suspect]
     Active Substance: HYDROCHLOROTHIAZIDE\LISINOPRIL
     Indication: HYPERTENSION
     Dosage: 10/12.5MG
     Route: 048
  3. PREMARIN [Suspect]
     Active Substance: ESTROGENS, CONJUGATED
     Indication: BLOOD CHOLESTEROL ABNORMAL
     Dosage: 1.25 MG, UNK
     Route: 048
  4. BILOCOR [Suspect]
     Active Substance: BISOPROLOL FUMARATE
     Indication: HYPERTENSION
     Dosage: 5 MG, UNK
     Route: 048
  5. ULTAK [Suspect]
     Active Substance: RANITIDINE HYDROCHLORIDE
     Indication: ULCER
     Dosage: 300 MG, UNK
     Route: 048

REACTIONS (4)
  - Confusional state [Unknown]
  - Dizziness [Unknown]
  - Blood pressure decreased [Unknown]
  - Feeling drunk [Unknown]
